FAERS Safety Report 5201997-2 (Version None)
Quarter: 2007Q1

REPORT INFORMATION
  Report Type: 
  Country: None (occurrence: None)
  Receive Date: 20070109
  Receipt Date: 20061213
  Transmission Date: 20070707
  Serious: Yes (Hospitalization)
  Sender: FDA-Public Use
  Company Number: 2006AP05616

PATIENT
  Age: 83 Year
  Sex: Female

DRUGS (5)
  1. MEROPENEM [Suspect]
     Indication: PNEUMONIA
     Route: 041
     Dates: start: 20060825, end: 20060831
  2. OMEPRAL [Suspect]
     Indication: UPPER GASTROINTESTINAL HAEMORRHAGE
     Route: 042
     Dates: start: 20060823, end: 20060831
  3. FOY [Concomitant]
     Indication: DISSEMINATED INTRAVASCULAR COAGULATION
     Route: 041
     Dates: start: 20060823
  4. SULPERAZON [Concomitant]
     Indication: PNEUMONIA
     Route: 042
     Dates: start: 20060823, end: 20060824
  5. LASIX [Concomitant]
     Indication: DIURETIC THERAPY
     Dosage: ONCE OR TWICE A DAY
     Route: 042
     Dates: start: 20060825

REACTIONS (1)
  - RHABDOMYOLYSIS [None]
